FAERS Safety Report 11538813 (Version 1)
Quarter: 2015Q3

REPORT INFORMATION
  Report Type: Spontaneous
  Country: RU (occurrence: None)
  Receive Date: 20150921
  Receipt Date: 20150921
  Transmission Date: 20151125
  Serious: Yes (Life-Threatening)
  Sender: FDA-Public Use
  Company Number: 2015RU0489

PATIENT
  Age: 3 Month
  Sex: Female

DRUGS (2)
  1. ORFADIN [Suspect]
     Active Substance: NITISINONE
     Dosage: 5 MG PER DAY (2.5 MG,2 IN 1 D)
     Dates: start: 20150824
  2. GLUCOSE [Concomitant]
     Active Substance: DEXTROSE

REACTIONS (2)
  - Hypoglycaemia [None]
  - Metabolic acidosis [None]

NARRATIVE: CASE EVENT DATE: 20150824
